FAERS Safety Report 9429324 (Version 3)
Quarter: 2015Q1

REPORT INFORMATION
  Report Type: Spontaneous
  Country: US (occurrence: US)
  Receive Date: 20130730
  Receipt Date: 20150106
  Transmission Date: 20150721
  Serious: Yes (Other)
  Sender: FDA-Public Use
  Company Number: US-ASTRAZENECA-2013SE55996

PATIENT
  Age: 50 Year
  Sex: Female
  Weight: 70.3 kg

DRUGS (18)
  1. SYNTHROID [Concomitant]
     Active Substance: LEVOTHYROXINE SODIUM
     Indication: THYROID DISORDER
     Route: 048
     Dates: start: 2012
  2. VITAMIN C [Concomitant]
     Active Substance: ASCORBIC ACID
  3. ATENOLOL. [Suspect]
     Active Substance: ATENOLOL
     Route: 065
  4. FISH OIL [Concomitant]
     Active Substance: FISH OIL
  5. SYNTHROID [Concomitant]
     Active Substance: LEVOTHYROXINE SODIUM
     Indication: THYROID DISORDER
  6. VITAMINS [Concomitant]
     Active Substance: VITAMINS
  7. ARIMIDEX [Suspect]
     Active Substance: ANASTROZOLE
     Indication: OESTROGEN RECEPTOR POSITIVE BREAST CANCER
     Route: 048
     Dates: start: 201210
  8. METOPROLOL ER [Suspect]
     Active Substance: METOPROLOL SUCCINATE
     Indication: BLOOD PRESSURE ABNORMAL
     Route: 048
  9. METOPROLOL SUCCINATE. [Suspect]
     Active Substance: METOPROLOL SUCCINATE
     Indication: BLOOD PRESSURE ABNORMAL
     Dosage: 25 MG DAILY IN THE FORM OF HALF OF A 50 MG
     Route: 048
  10. LIPITOR [Concomitant]
     Active Substance: ATORVASTATIN CALCIUM
     Indication: BLOOD CHOLESTEROL ABNORMAL
     Route: 048
  11. ARIMIDEX [Suspect]
     Active Substance: ANASTROZOLE
     Indication: BREAST CANCER
     Route: 048
     Dates: start: 201210
  12. VITAMIN B12 [Concomitant]
     Active Substance: CYANOCOBALAMIN
  13. LIPITOR [Concomitant]
     Active Substance: ATORVASTATIN CALCIUM
     Indication: BLOOD CHOLESTEROL ABNORMAL
  14. CALCIUM SUPPLEMENTS [Concomitant]
     Active Substance: CALCIUM
  15. ONE-A-DAY NOS [Concomitant]
     Active Substance: MINERALS\VITAMINS
  16. SYNTHROID [Concomitant]
     Active Substance: LEVOTHYROXINE SODIUM
     Indication: THYROID DISORDER
     Route: 048
     Dates: start: 2012
  17. VITAMIN D [Concomitant]
     Active Substance: CHOLECALCIFEROL
  18. CALCIUM SUPPLEMENTS [Concomitant]
     Active Substance: CALCIUM

REACTIONS (18)
  - Haematoma [Unknown]
  - Ulcer [Unknown]
  - Lip injury [Unknown]
  - Biliary dilatation [Unknown]
  - Gastric polyps [Unknown]
  - Lip pain [Unknown]
  - Limb discomfort [Recovered/Resolved]
  - Abdominal discomfort [Unknown]
  - Abdominal mass [Unknown]
  - Lip ulceration [Unknown]
  - Lip dry [Unknown]
  - Vertigo [Unknown]
  - Trigger finger [Unknown]
  - Effusion [Unknown]
  - Pancreatic cyst [Unknown]
  - Weight decreased [Unknown]
  - High density lipoprotein decreased [Unknown]
  - Non-alcoholic steatohepatitis [Unknown]

NARRATIVE: CASE EVENT DATE: 2000
